FAERS Safety Report 13461592 (Version 1)
Quarter: 2017Q2

REPORT INFORMATION
  Report Type: Spontaneous
  Country: SA (occurrence: SA)
  Receive Date: 20170420
  Receipt Date: 20170420
  Transmission Date: 20170830
  Serious: Yes (Other)
  Sender: FDA-Public Use
  Company Number: SA-PFIZER INC-2017168941

PATIENT
  Age: 20 Year
  Sex: Male

DRUGS (2)
  1. CYTARABINE. [Suspect]
     Active Substance: CYTARABINE
     Indication: B PRECURSOR TYPE ACUTE LEUKAEMIA
     Dosage: 2000 MG/M2, DAILY (ARA-C 2000 MG/M2 IV INFUSION DAILY OVER 4 H ON DAYS 1 THROUGH 5)
     Route: 041
  2. FLUDARABINE [Suspect]
     Active Substance: FLUDARABINE PHOSPHATE
     Indication: B PRECURSOR TYPE ACUTE LEUKAEMIA
     Dosage: 30 MG/M2, DAILY (30 MG/M2 IV OVER 30 MIN ON DAYS 1 THROUGH 5)
     Route: 041

REACTIONS (4)
  - Diarrhoea [Recovered/Resolved]
  - Hyperpyrexia [Recovered/Resolved]
  - Intracranial pressure increased [Recovered/Resolved]
  - Septic shock [Recovered/Resolved]
